FAERS Safety Report 8745976 (Version 5)
Quarter: 2013Q2

REPORT INFORMATION
  Report Type: Spontaneous
  Country: JP (occurrence: JP)
  Receive Date: 20120827
  Receipt Date: 20130507
  Transmission Date: 20140414
  Serious: Yes (Life-Threatening, Hospitalization, Other)
  Sender: FDA-Public Use
  Company Number: JP-JNJFOC-20120809191

PATIENT
  Age: 76 Year
  Sex: Female

DRUGS (15)
  1. SIMPONI [Suspect]
     Indication: RHEUMATOID ARTHRITIS
     Route: 058
     Dates: start: 20120321, end: 201206
  2. PREDNISOLONE [Concomitant]
     Indication: RHEUMATOID ARTHRITIS
     Route: 048
  3. NOVORAPID [Concomitant]
     Indication: DIABETES MELLITUS
     Route: 058
  4. JANUVIA [Concomitant]
     Indication: DIABETES MELLITUS
     Route: 048
  5. METGLUCO [Concomitant]
     Indication: DIABETES MELLITUS
     Route: 048
  6. SEIBULE [Concomitant]
     Indication: DIABETES MELLITUS
     Route: 048
  7. MARZULENE-S [Concomitant]
     Route: 048
  8. URSO [Concomitant]
     Route: 048
  9. OMEPRAL [Concomitant]
     Route: 065
  10. MEVALOTIN [Concomitant]
     Indication: HYPERLIPIDAEMIA
     Route: 048
  11. PAXIL [Concomitant]
     Route: 048
  12. PREMINENT [Concomitant]
     Indication: HYPERTENSION
     Route: 048
  13. BAKTAR [Concomitant]
     Indication: INTERSTITIAL LUNG DISEASE
     Route: 048
  14. BAYASPIRIN [Concomitant]
     Route: 048
  15. SOLANAX [Concomitant]
     Route: 048

REACTIONS (2)
  - Arthritis bacterial [Recovered/Resolved]
  - Sepsis [Recovered/Resolved]
